FAERS Safety Report 6692554-X (Version None)
Quarter: 2010Q2

REPORT INFORMATION
  Report Type: 
  Country: None (occurrence: None)
  Receive Date: 20100419
  Receipt Date: 20100412
  Transmission Date: 20101027
  Serious: Yes (Other)
  Sender: FDA-Public Use
  Company Number: 2010SP009930

PATIENT
  Age: 47 Year
  Sex: Female

DRUGS (4)
  1. IMPLANON [Suspect]
     Indication: CONTRACEPTION
     Dosage: SC
     Route: 058
     Dates: start: 20100118, end: 20100222
  2. WARFARIN SODIUM [Concomitant]
  3. ANTIEPILEPTICS [Concomitant]
  4. SERETIDE /01420901/ [Concomitant]

REACTIONS (1)
  - ERYTHEMA NODOSUM [None]
